FAERS Safety Report 4831422-2 (Version None)
Quarter: 2005Q4

REPORT INFORMATION
  Report Type: 
  Country: None (occurrence: None)
  Receive Date: 20051116
  Receipt Date: 20051111
  Transmission Date: 20060501
  Serious: Yes (Hospitalization)
  Sender: FDA-Public Use
  Company Number: STA-AE-05-033

PATIENT
  Age: 55 Year
  Sex: Male

DRUGS (2)
  1. NAPROXEN [Suspect]
     Dosage: 500MG, ORAL
     Route: 048
  2. ASPIRIN [Concomitant]

REACTIONS (1)
  - ANAPHYLACTIC REACTION [None]
